FAERS Safety Report 4717805-X (Version None)
Quarter: 2005Q3

REPORT INFORMATION
  Report Type: 
  Country: None (occurrence: None)
  Receive Date: 20050715
  Receipt Date: 20041117
  Transmission Date: 20060218
  Serious: Yes (Death)
  Sender: FDA-Public Use
  Company Number: 2004-00835

PATIENT
  Sex: Male

DRUGS (4)
  1. INTEGRILIN [Suspect]
     Indication: CORONARY ANGIOPLASTY
     Dates: start: 20040801, end: 20040801
  2. HEPARIN [Concomitant]
  3. PLAVIX [Concomitant]
  4. REOPRO [Concomitant]

REACTIONS (1)
  - HAEMORRHAGE INTRACRANIAL [None]
